FAERS Safety Report 6510777-7 (Version None)
Quarter: 2009Q4

REPORT INFORMATION
  Report Type: 
  Country: None (occurrence: None)
  Receive Date: 20091222
  Receipt Date: 20091211
  Transmission Date: 20100525
  Serious: Yes (Death)
  Sender: FDA-Public Use
  Company Number: JP-PFIZER INC-2009271449

PATIENT
  Age: 76 Year

DRUGS (2)
  1. RIFABUTIN [Suspect]
     Indication: MYCOBACTERIUM AVIUM COMPLEX INFECTION
     Dosage: UNK
     Route: 048
     Dates: start: 20090108, end: 20090724
  2. TAKEPRON [Concomitant]
     Route: 048

REACTIONS (1)
  - MALNUTRITION [None]
